FAERS Safety Report 5132473-3 (Version None)
Quarter: 2006Q4

REPORT INFORMATION
  Report Type: 
  Country: None (occurrence: None)
  Receive Date: 20061017
  Receipt Date: 20061011
  Transmission Date: 20070319
  Serious: Yes (Hospitalization)
  Sender: FDA-Public Use
  Company Number: 06TR000836

PATIENT
  Age: 31 Year
  Sex: Male

DRUGS (3)
  1. LITHIUM CARBONATE [Suspect]
     Indication: BIPOLAR DISORDER
     Dosage: 1200 MG, QD
  2. LAMOTRIGINE [Concomitant]
  3. ESCITALOPRAM OXALATE [Concomitant]

REACTIONS (23)
  - ABASIA [None]
  - ALANINE AMINOTRANSFERASE INCREASED [None]
  - ANXIETY [None]
  - ASPARTATE AMINOTRANSFERASE INCREASED [None]
  - BLOOD CHLORIDE DECREASED [None]
  - BLOOD CREATINE PHOSPHOKINASE INCREASED [None]
  - BLOOD CREATINE PHOSPHOKINASE MB INCREASED [None]
  - BLOOD LACTATE DEHYDROGENASE INCREASED [None]
  - C-REACTIVE PROTEIN INCREASED [None]
  - CEREBELLAR SYNDROME [None]
  - DYSARTHRIA [None]
  - DYSPHASIA [None]
  - ELECTROENCEPHALOGRAM ABNORMAL [None]
  - ELECTROLYTE IMBALANCE [None]
  - HEART RATE INCREASED [None]
  - HYPERTHERMIA [None]
  - HYPONATRAEMIA [None]
  - INFECTION [None]
  - NAUSEA [None]
  - NEUROTOXICITY [None]
  - PNEUMONIA [None]
  - THERAPEUTIC AGENT TOXICITY [None]
  - VOMITING [None]
